FAERS Safety Report 21167593 (Version 1)
Quarter: 2022Q3

REPORT INFORMATION
  Report Type: Spontaneous
  Country: US (occurrence: None)
  Receive Date: 20220803
  Receipt Date: 20220803
  Transmission Date: 20221027
  Serious: No
  Sender: FDA-Public Use
  Company Number: None

PATIENT
  Age: 61 Year
  Sex: Female
  Weight: 66.68 kg

DRUGS (19)
  1. MAGNESIUM CITRATE SALINE LAXATIVE [Suspect]
     Active Substance: MAGNESIUM CITRATE
     Indication: Bowel preparation
     Dosage: OTHER QUANTITY : 10 OUNCE(S);?
     Route: 048
     Dates: start: 20211012, end: 20211012
  2. CELEBREX [Concomitant]
     Active Substance: CELECOXIB
  3. CYMBALTA [Concomitant]
     Active Substance: DULOXETINE HYDROCHLORIDE
  4. GABAPENTIN [Concomitant]
     Active Substance: GABAPENTIN
  5. IMURAN [Concomitant]
     Active Substance: AZATHIOPRINE
  6. LIDOCAINE [Concomitant]
     Active Substance: LIDOCAINE
  7. NORVASC [Concomitant]
     Active Substance: AMLODIPINE BESYLATE
  8. PREVACID [Concomitant]
     Active Substance: LANSOPRAZOLE
  9. RESTASIS [Concomitant]
     Active Substance: CYCLOSPORINE
  10. VAGIFEM [Concomitant]
     Active Substance: ESTRADIOL
  11. VALTREX [Concomitant]
     Active Substance: VALACYCLOVIR HYDROCHLORIDE
  12. Vitamin B^s [Concomitant]
  13. CLARITIN [Concomitant]
     Active Substance: LORATADINE
  14. VITAMIN E [Concomitant]
     Active Substance: .ALPHA.-TOCOPHEROL
  15. FOLIC ACID [Concomitant]
     Active Substance: FOLIC ACID
  16. PROBIOTICS NOS [Concomitant]
     Active Substance: PROBIOTICS NOS
  17. SENNA [Concomitant]
     Active Substance: SENNA LEAF\SENNOSIDES\SENNOSIDES A AND B
  18. STOOL SOFTENER (DOCUSATE) [Concomitant]
     Active Substance: DOCUSATE
  19. TRIPHALA [Concomitant]

REACTIONS (4)
  - Abdominal pain [None]
  - Muscle spasms [None]
  - Fatigue [None]
  - Diarrhoea [None]

NARRATIVE: CASE EVENT DATE: 20211012
